FAERS Safety Report 9462534 (Version 1)
Quarter: 2013Q3

REPORT INFORMATION
  Report Type: Spontaneous
  Country: US (occurrence: None)
  Receive Date: 20130815
  Receipt Date: 20130815
  Transmission Date: 20140515
  Serious: Yes (Life-Threatening)
  Sender: FDA-Public Use
  Company Number: None

PATIENT
  Age: 59 Year
  Sex: Male

DRUGS (2)
  1. PIPERACILLIN/TAZOBACTAM [Suspect]
     Indication: PENILE PROSTHESIS INSERTION
     Route: 042
     Dates: start: 20130726, end: 20130726
  2. PIPERACILLIN/TAZOBACTAM [Suspect]
     Indication: IMPLANT SITE INFECTION
     Route: 042
     Dates: start: 20130726, end: 20130726

REACTIONS (1)
  - Anaphylactic reaction [None]
